FAERS Safety Report 16721155 (Version 1)
Quarter: 2019Q3

REPORT INFORMATION
  Report Type: Spontaneous
  Country: US (occurrence: US)
  Receive Date: 20190703
  Receipt Date: 20190703
  Transmission Date: 20191005
  Serious: No
  Sender: FDA-Public Use
  Company Number: None

PATIENT
  Age: 30 Year
  Sex: Male

DRUGS (1)
  1. ALBUTEROL NEB [Suspect]
     Active Substance: ALBUTEROL
     Dates: start: 201901

REACTIONS (1)
  - Tremor [None]

NARRATIVE: CASE EVENT DATE: 20190703
